FAERS Safety Report 9100578 (Version 1)
Quarter: 2013Q1

REPORT INFORMATION
  Report Type: Report from Study
  Country: DE (occurrence: DE)
  Receive Date: 20130215
  Receipt Date: 20130215
  Transmission Date: 20140127
  Serious: Yes (Other)
  Sender: FDA-Public Use
  Company Number: DE-B.I. PHARMACEUTICALS,INC./RIDGEFIELD-2013-DE-00332DE

PATIENT
  Sex: 0

DRUGS (1)
  1. PRADAXA [Suspect]

REACTIONS (3)
  - Neoplasm [Unknown]
  - Haemorrhoidal haemorrhage [Unknown]
  - Haemorrhage [Unknown]
